FAERS Safety Report 15961269 (Version 2)
Quarter: 2019Q1

REPORT INFORMATION
  Report Type: Spontaneous
  Country: US (occurrence: US)
  Receive Date: 20190214
  Receipt Date: 20190325
  Transmission Date: 20190417
  Serious: No
  Sender: FDA-Public Use
  Company Number: US-JNJFOC-20190202264

PATIENT
  Sex: Female
  Weight: 63.5 kg

DRUGS (3)
  1. LYRICA [Suspect]
     Active Substance: PREGABALIN
     Indication: NEUROPATHY PERIPHERAL
     Dosage: TWO TABLETS UP TO THREE TIMES DAILY AS NEEDED
     Route: 048
     Dates: start: 1993
  2. TRAMADOL. [Suspect]
     Active Substance: TRAMADOL
     Indication: FIBROMYALGIA
     Dosage: TWO TABLETS UP TO THREE TIMES DAILY AS NEEDED
     Route: 048
     Dates: start: 1993
  3. LYRICA [Suspect]
     Active Substance: PREGABALIN
     Indication: FIBROMYALGIA
     Dosage: TWO TABLETS UP TO THREE TIMES DAILY AS NEEDED
     Route: 048
     Dates: start: 1993

REACTIONS (1)
  - Drug ineffective [Unknown]
